FAERS Safety Report 17104139 (Version 1)
Quarter: 2019Q4

REPORT INFORMATION
  Report Type: Spontaneous
  Country: JP (occurrence: JP)
  Receive Date: 20191203
  Receipt Date: 20191203
  Transmission Date: 20200122
  Serious: Yes (Other)
  Sender: FDA-Public Use
  Company Number: JP-GLAXOSMITHKLINE-JP2019JPN217341

PATIENT
  Age: 78 Year
  Sex: Male

DRUGS (16)
  1. HAEMOLEX [Concomitant]
     Dosage: UNK
  2. AZILVA TABLETS [Concomitant]
     Dosage: UNK
  3. METOCLOPRAMIDE TABLETS [Concomitant]
     Active Substance: METOCLOPRAMIDE
     Dosage: UNK
  4. BENIDIPINE HYDROCHLORIDE [Concomitant]
     Active Substance: BENIDIPINE HYDROCHLORIDE
     Dosage: UNK
  5. XARELTO TABLETS [Concomitant]
     Dosage: UNK
  6. XALATAN [Concomitant]
     Active Substance: LATANOPROST
     Dosage: UNK
  7. MAGMITT TABLET [Concomitant]
     Dosage: UNK
  8. BIOFERMIN [Concomitant]
     Active Substance: DIETARY SUPPLEMENT\PROBIOTICS
     Dosage: UNK
  9. GASSAAL [Concomitant]
     Dosage: UNK
  10. IMIDAPRIL HYDROCHLORIDE [Concomitant]
     Active Substance: IMIDAPRIL HYDROCHLORIDE
     Dosage: UNK
  11. OMEPRAZOLE. [Concomitant]
     Active Substance: OMEPRAZOLE
     Dosage: UNK
  12. BETANIS TABLETS [Concomitant]
     Dosage: UNK
  13. SERETIDE [Suspect]
     Active Substance: FLUTICASONE PROPIONATE\SALMETEROL XINAFOATE
     Dosage: 250 ?G, BID
     Route: 055
     Dates: start: 20111015
  14. FEBURIC TABLETS [Concomitant]
     Active Substance: FEBUXOSTAT
     Dosage: UNK
  15. CERNILTON [Concomitant]
     Active Substance: HERBALS
     Dosage: UNK
  16. HYALEIN OPHTHALMIC SOLUTION [Concomitant]
     Dosage: UNK

REACTIONS (1)
  - Gastrointestinal candidiasis [Unknown]
